FAERS Safety Report 9681534 (Version 1)
Quarter: 2013Q4

REPORT INFORMATION
  Report Type: Spontaneous
  Country: US (occurrence: US)
  Receive Date: 20131111
  Receipt Date: 20131111
  Transmission Date: 20140711
  Serious: Yes (Death, Hospitalization)
  Sender: FDA-Public Use
  Company Number: US-GLAXOSMITHKLINE-A1048874A

PATIENT
  Sex: Male

DRUGS (1)
  1. ARZERRA [Suspect]
     Indication: CHRONIC LYMPHOCYTIC LEUKAEMIA
     Dosage: 2000MG SEE DOSAGE TEXT
     Route: 042
     Dates: start: 201306, end: 201309

REACTIONS (3)
  - Death [Fatal]
  - Pyrexia [Unknown]
  - Haemoglobin decreased [Unknown]
